FAERS Safety Report 6518112-5 (Version None)
Quarter: 2009Q4

REPORT INFORMATION
  Report Type: 
  Country: None (occurrence: None)
  Receive Date: 20091224
  Receipt Date: 20091210
  Transmission Date: 20100525
  Serious: Yes (Death, Other)
  Sender: FDA-Public Use
  Company Number: JP-PFIZER INC-2009310029

PATIENT
  Sex: Male

DRUGS (5)
  1. SUNITINIB MALATE [Suspect]
     Indication: GASTROINTESTINAL STROMAL TUMOUR
     Dosage: 50 MG, 1X/DAY
     Route: 048
     Dates: start: 20090903, end: 20091001
  2. LASIX [Concomitant]
     Route: 048
     Dates: start: 20090525
  3. GASTER [Concomitant]
     Route: 048
     Dates: start: 20090525
  4. URSO 250 [Concomitant]
     Route: 048
  5. MARZULENE [Concomitant]
     Route: 048

REACTIONS (2)
  - BONE MARROW FAILURE [None]
  - DEATH [None]
